FAERS Safety Report 9608541 (Version 1)
Quarter: 2013Q4

REPORT INFORMATION
  Report Type: Spontaneous
  Country: CA (occurrence: CA)
  Receive Date: 20131009
  Receipt Date: 20131009
  Transmission Date: 20140711
  Serious: Yes (Other)
  Sender: FDA-Public Use
  Company Number: CA-PFIZER INC-2013289104

PATIENT
  Age: 28 Year
  Sex: Male

DRUGS (2)
  1. MORPHINE SULFATE [Suspect]
  2. EXELON [Suspect]

REACTIONS (5)
  - Substance abuse [Unknown]
  - Psychomotor skills impaired [Unknown]
  - Dysarthria [Unknown]
  - Incoherent [Unknown]
  - Somnolence [Unknown]
